FAERS Safety Report 8060133-8 (Version None)
Quarter: 2012Q1

REPORT INFORMATION
  Report Type: 
  Country: None (occurrence: None)
  Receive Date: 20120120
  Receipt Date: 20120118
  Transmission Date: 20120608
  Serious: Yes (Other)
  Sender: FDA-Public Use
  Company Number: US-BAYER-2011-117397

PATIENT
  Age: 38 Year
  Sex: Female

DRUGS (7)
  1. GABAPENTIN [Concomitant]
     Dosage: 300 MG, QD
  2. BETASERON [Suspect]
     Indication: RELAPSING-REMITTING MULTIPLE SCLEROSIS
     Dosage: 2 MIU, QOD
     Route: 058
     Dates: start: 20111202
  3. MARIJUANA [Concomitant]
     Route: 048
  4. PROZAC [Concomitant]
     Dosage: 30 MG, QD
  5. WELLBUTRIN SR [Concomitant]
     Dosage: 150 MG, QD
  6. VICODIN [Concomitant]
     Dosage: 1 UNK, TID
  7. BACLOFEN [Concomitant]
     Dosage: 10 MG, UNK

REACTIONS (6)
  - TREMOR [None]
  - VOMITING [None]
  - DIARRHOEA [None]
  - PYREXIA [None]
  - HEART RATE INCREASED [None]
  - BLOOD PRESSURE INCREASED [None]
